FAERS Safety Report 9251318 (Version 1)
Quarter: 2013Q1

REPORT INFORMATION
  Report Type: Spontaneous
  Country: US (occurrence: None)
  Receive Date: 20130305
  Receipt Date: 20130305
  Transmission Date: 20140127
  Serious: Yes (Other)
  Sender: FDA-Public Use
  Company Number: 163-21880-12042274

PATIENT
  Age: 74 Year
  Sex: Male
  Weight: 68.04 kg

DRUGS (5)
  1. REVLIMID (LENALIDOMIDE) (CAPSULES) [Suspect]
     Indication: PLASMA CELL MYELOMA
     Dosage: 5 MG, DAILY X 28 DAYS, PO
     Dates: start: 20120402
  2. AMIODARONE (AMIODARONE) [Concomitant]
  3. VITAMIN E (TOCOPHEROL) [Concomitant]
  4. VITAMINS [Concomitant]
  5. METOPROLOL (METOPROLOL) [Concomitant]

REACTIONS (3)
  - Haemoglobin decreased [None]
  - Dyspnoea [None]
  - Dizziness [None]
